FAERS Safety Report 5338641-X (Version None)
Quarter: 2007Q2

REPORT INFORMATION
  Report Type: 
  Country: None (occurrence: None)
  Receive Date: 20070322
  Receipt Date: 20060502
  Transmission Date: 20071010
  Serious: Yes (Other)
  Sender: FDA-Public Use
  Company Number: 200611178BCC

PATIENT
  Age: 60 Year
  Sex: Female
  Weight: 63.5036 kg

DRUGS (6)
  1. ALEVE [Suspect]
     Indication: ARTHRITIS
     Dosage: SEE IMAGE
     Route: 048
     Dates: start: 20051001
  2. ALEVE [Suspect]
  3. LEVOXYL [Concomitant]
  4. ESTRADIOL [Concomitant]
  5. PROPRANOLOL [Concomitant]
  6. CALCIUM CHLORIDE [Concomitant]

REACTIONS (7)
  - ABDOMINAL PAIN UPPER [None]
  - CHEST PAIN [None]
  - DYSPEPSIA [None]
  - GASTRITIS [None]
  - HAEMORRHAGE [None]
  - NAUSEA [None]
  - VOMITING [None]
